FAERS Safety Report 19596871 (Version 1)
Quarter: 2021Q3

REPORT INFORMATION
  Report Type: Spontaneous
  Country: US (occurrence: US)
  Receive Date: 20210722
  Receipt Date: 20210722
  Transmission Date: 20211014
  Serious: No
  Sender: FDA-Public Use
  Company Number: US-ELI_LILLY_AND_COMPANY-US202106014335

PATIENT
  Age: 24 Year
  Sex: Female

DRUGS (3)
  1. EMGALITY [Suspect]
     Active Substance: GALCANEZUMAB-GNLM
     Dosage: 120 MG, MONTHLY (1/M)
     Route: 065
     Dates: end: 20210622
  2. EMGALITY [Suspect]
     Active Substance: GALCANEZUMAB-GNLM
     Indication: MIGRAINE
     Dosage: 240 MG, LOADING DOSE
     Route: 065
     Dates: start: 20200401, end: 20200401
  3. RIMEGEPANT. [Concomitant]
     Active Substance: RIMEGEPANT
     Indication: MIGRAINE
     Dosage: 75 MG, PRN
     Route: 065
     Dates: start: 202011

REACTIONS (1)
  - Intraocular pressure increased [Unknown]

NARRATIVE: CASE EVENT DATE: 20201015
